FAERS Safety Report 13591955 (Version 3)
Quarter: 2017Q3

REPORT INFORMATION
  Report Type: Spontaneous
  Country: JP (occurrence: JP)
  Receive Date: 20170530
  Receipt Date: 20170918
  Transmission Date: 20171127
  Serious: Yes (Hospitalization, Other)
  Sender: FDA-Public Use
  Company Number: JP-BRISTOL-MYERS SQUIBB COMPANY-BMS-2017-047153

PATIENT
  Sex: Female
  Weight: 47.2 kg

DRUGS (13)
  1. ALDACTONE [Concomitant]
     Active Substance: SPIRONOLACTONE
     Indication: CARDIAC FAILURE
     Route: 065
  2. MAINTATE [Concomitant]
     Active Substance: BISOPROLOL FUMARATE
     Indication: HYPERTENSION
     Dosage: 1.25 MG, QD
     Route: 048
  3. MAINTATE [Concomitant]
     Active Substance: BISOPROLOL FUMARATE
     Indication: CARDIAC FAILURE
     Route: 065
  4. ISONARIF [Concomitant]
     Active Substance: ISONIAZID\RIFAMPIN
     Indication: LYMPH NODE TUBERCULOSIS
     Dosage: 200 MG, DAILY
     Route: 048
     Dates: start: 20161115
  5. PYDOXAL [Concomitant]
     Active Substance: PYRIDOXAL
     Indication: LYMPH NODE TUBERCULOSIS
     Dosage: 40 MG, DAILY
     Route: 048
     Dates: start: 20161215
  6. REBAMIPIDE [Concomitant]
     Active Substance: REBAMIPIDE
     Indication: ASTHMA
     Dosage: 100 MG, TID
     Route: 048
  7. PYRAMIDE [Concomitant]
     Active Substance: PYRAZINAMIDE
     Indication: LYMPH NODE TUBERCULOSIS
     Dosage: 1 G, QD
     Route: 048
     Dates: start: 20170126
  8. ALDACTONE [Concomitant]
     Active Substance: SPIRONOLACTONE
     Indication: HYPERTENSION
     Dosage: 25 MG, QD
     Route: 048
  9. RIFAMPICIN [Suspect]
     Active Substance: RIFAMPIN
     Indication: LYMPH NODE TUBERCULOSIS
     Dosage: 300 MG, QD
     Route: 065
     Dates: start: 20161115
  10. ESANBUTOL                          /00022301/ [Concomitant]
     Indication: LYMPH NODE TUBERCULOSIS
     Dosage: 250 MG, QD
     Route: 048
     Dates: start: 20170126
  11. NEOMALLERMIN [Concomitant]
     Active Substance: DEXCHLORPHENIRAMINE MALEATE
     Indication: ASTHMA
     Dosage: 2 MG, BID
     Route: 048
  12. ELIQUIS [Suspect]
     Active Substance: APIXABAN
     Indication: CEREBROVASCULAR ACCIDENT PROPHYLAXIS
     Dosage: 5 MG, BID
     Route: 048
     Dates: start: 2014, end: 20170428
  13. FEXOFENADINE HYDROCHLORIDE. [Concomitant]
     Active Substance: FEXOFENADINE HYDROCHLORIDE
     Indication: ASTHMA
     Dosage: 60 MG, QD
     Route: 048

REACTIONS (3)
  - Lymph node tuberculosis [Unknown]
  - Lung neoplasm malignant [Unknown]
  - Cerebral infarction [Recovered/Resolved]

NARRATIVE: CASE EVENT DATE: 20170426
